FAERS Safety Report 21923904 (Version 1)
Quarter: 2023Q1

REPORT INFORMATION
  Report Type: Spontaneous
  Country: US (occurrence: US)
  Receive Date: 20230130
  Receipt Date: 20230130
  Transmission Date: 20230417
  Serious: No
  Sender: FDA-Public Use
  Company Number: US-Accord-282554

PATIENT
  Sex: Female
  Weight: 77.11 kg

DRUGS (1)
  1. FLUOROURACIL [Suspect]
     Active Substance: FLUOROURACIL
     Indication: Precancerous condition
     Dosage: STRENGTH: 5% CREAM?DOSE: APPLY TOPICALLY TO NOSE TWICE DAILY

REACTIONS (2)
  - Application site erythema [Unknown]
  - Weight decreased [Unknown]
